FAERS Safety Report 25444461 (Version 1)
Quarter: 2025Q2

REPORT INFORMATION
  Report Type: Spontaneous
  Country: ES (occurrence: ES)
  Receive Date: 20250617
  Receipt Date: 20250617
  Transmission Date: 20250717
  Serious: Yes (Death, Life-Threatening, Hospitalization, Disabling)
  Sender: ABBVIE
  Company Number: None

PATIENT
  Age: 67 Year

DRUGS (1)
  1. RINVOQ [Suspect]
     Active Substance: UPADACITINIB
     Indication: Product used for unknown indication
     Route: 048
     Dates: start: 20240108, end: 20250128

REACTIONS (1)
  - Pancreatic neoplasm [Fatal]

NARRATIVE: CASE EVENT DATE: 20250218
